FAERS Safety Report 14940298 (Version 3)
Quarter: 2019Q1

REPORT INFORMATION
  Report Type: Report from Study
  Country: GB (occurrence: GB)
  Receive Date: 20180525
  Receipt Date: 20190107
  Transmission Date: 20190417
  Serious: Yes (Life-Threatening, Hospitalization)
  Sender: FDA-Public Use
  Company Number: GB-SA-2017SA106720

PATIENT
  Age: 45 Year
  Sex: Female

DRUGS (2)
  1. ALEMTUZUMAB [Suspect]
     Active Substance: ALEMTUZUMAB
     Indication: MULTIPLE SCLEROSIS RELAPSE
     Dosage: 12 MG,QD
     Route: 041
     Dates: start: 20161108, end: 20161112
  2. ALEMTUZUMAB [Suspect]
     Active Substance: ALEMTUZUMAB
     Dosage: 12 MG, QD
     Route: 041
     Dates: start: 20171108, end: 20171108

REACTIONS (64)
  - Bacterial vaginosis [Recovering/Resolving]
  - Non-cardiac chest pain [Recovered/Resolved]
  - Vision blurred [Unknown]
  - Thirst [Recovering/Resolving]
  - Tinnitus [Recovered/Resolved]
  - Pyelonephritis [Recovered/Resolved]
  - Headache [Recovering/Resolving]
  - Anaphylactic reaction [Recovered/Resolved]
  - Nausea [Unknown]
  - Fibrin D dimer increased [Unknown]
  - Pain [Unknown]
  - Rash [Recovering/Resolving]
  - Tremor [Recovering/Resolving]
  - Muscular weakness [Recovered/Resolved]
  - Multiple sclerosis relapse [Recovered/Resolved]
  - Rash [Not Recovered/Not Resolved]
  - Dyspnoea at rest [Recovered/Resolved]
  - Furuncle [Recovering/Resolving]
  - Wheezing [Recovered/Resolved]
  - Epistaxis [Recovering/Resolving]
  - Dyspnoea [Recovered/Resolved]
  - Chest discomfort [Recovering/Resolving]
  - Rash [Unknown]
  - Rash [Recovering/Resolving]
  - Neuralgia [Recovering/Resolving]
  - Respiratory tract infection [Recovering/Resolving]
  - Hypersensitivity [Recovering/Resolving]
  - Pruritus [Recovering/Resolving]
  - Oropharyngeal spasm [Recovering/Resolving]
  - Burning sensation [Recovering/Resolving]
  - Non-cardiac chest pain [Recovering/Resolving]
  - Neuralgia [Recovering/Resolving]
  - Pain in jaw [Recovering/Resolving]
  - Palpitations [Recovering/Resolving]
  - Palpitations [Recovering/Resolving]
  - Chest discomfort [Not Recovered/Not Resolved]
  - Arthralgia [Recovering/Resolving]
  - Headache [Not Recovered/Not Resolved]
  - Rash [Recovering/Resolving]
  - Nasal septum perforation [Recovering/Resolving]
  - Dysphagia [Recovering/Resolving]
  - Pain in extremity [Recovering/Resolving]
  - Nasopharyngitis [Not Recovered/Not Resolved]
  - Non-cardiac chest pain [Recovered/Resolved]
  - Vomiting [Recovered/Resolved]
  - Nasopharyngitis [Recovering/Resolving]
  - Rash [Recovered/Resolved]
  - Throat lesion [Recovered/Resolved]
  - Gingival bleeding [Recovering/Resolving]
  - Abdominal distension [Recovering/Resolving]
  - Back pain [Recovering/Resolving]
  - Oral herpes [Recovering/Resolving]
  - Skin bacterial infection [Recovering/Resolving]
  - Pruritus [Recovering/Resolving]
  - Non-cardiac chest pain [Recovered/Resolved]
  - Peripheral swelling [Recovering/Resolving]
  - Multiple sclerosis relapse [Recovering/Resolving]
  - Migraine [Recovered/Resolved]
  - Nausea [Recovered/Resolved]
  - Tinnitus [Recovering/Resolving]
  - Muscular weakness [Recovering/Resolving]
  - Fatigue [Recovering/Resolving]
  - Migraine [Recovering/Resolving]
  - Gastrooesophageal reflux disease [Recovering/Resolving]

NARRATIVE: CASE EVENT DATE: 201611
